FAERS Safety Report 13639391 (Version 1)
Quarter: 2017Q2

REPORT INFORMATION
  Report Type: Spontaneous
  Country: US (occurrence: US)
  Receive Date: 20170609
  Receipt Date: 20170609
  Transmission Date: 20170830
  Serious: Yes (Other)
  Sender: FDA-Public Use
  Company Number: US-ROCHE-1115853

PATIENT
  Sex: Female

DRUGS (1)
  1. KLONOPIN [Suspect]
     Active Substance: CLONAZEPAM
     Indication: SLEEP DISORDER
     Route: 065
     Dates: start: 2010

REACTIONS (7)
  - Anxiety [Unknown]
  - Restlessness [Unknown]
  - Depression [Unknown]
  - Suicidal ideation [Unknown]
  - Agitation [Unknown]
  - Insomnia [Unknown]
  - Panic attack [Unknown]
